FAERS Safety Report 17398548 (Version 6)
Quarter: 2022Q1

REPORT INFORMATION
  Report Type: Report from Study
  Country: PL (occurrence: PL)
  Receive Date: 20200210
  Receipt Date: 20220217
  Transmission Date: 20220424
  Serious: Yes (Life-Threatening, Hospitalization)
  Sender: FDA-Public Use
  Company Number: PL-AMGEN-POLNI2020019507

PATIENT
  Age: 66 Year
  Sex: Female
  Weight: 41.5 kg

DRUGS (15)
  1. PANITUMUMAB [Suspect]
     Active Substance: PANITUMUMAB
     Indication: Colorectal cancer metastatic
     Dosage: UNK
     Route: 042
     Dates: start: 20191120
  2. DEXAMETHASONE [Concomitant]
     Active Substance: DEXAMETHASONE
     Dosage: 8 MILLIGRAM
     Route: 042
     Dates: start: 20191028, end: 20200109
  3. ONDANSETRON [Concomitant]
     Active Substance: ONDANSETRON
     Dosage: 8 MILLIGRAM
     Route: 042
     Dates: start: 20191028, end: 20200109
  4. CLEMASTINUM [CLEMASTINE] [Concomitant]
     Dosage: 2 MILLIGRAM
     Route: 042
     Dates: start: 20191028, end: 20200107
  5. OMEPRAZOLUM [Concomitant]
     Dosage: 20 MILLIGRAM
     Route: 048
     Dates: start: 20191028, end: 20200109
  6. ENOXAPARIN [Concomitant]
     Active Substance: ENOXAPARIN
     Dosage: 40 MILLIGRAM
     Route: 058
     Dates: start: 20191206
  7. PANTOPRAZOLE [Concomitant]
     Active Substance: PANTOPRAZOLE
     Dosage: 20 MILLIGRAM
     Route: 048
     Dates: start: 20191122
  8. NYSTATIN [Concomitant]
     Active Substance: NYSTATIN
     Dosage: 100000 UNK
     Route: 061
     Dates: start: 20200122, end: 20200130
  9. RETINOL [Concomitant]
     Active Substance: RETINOL
     Dosage: 20 UNK
     Route: 061
     Dates: start: 20200122, end: 20200130
  10. VITAMIN E [Concomitant]
     Active Substance: .ALPHA.-TOCOPHEROL
     Dosage: 20 UNK
     Route: 061
     Dates: start: 20200122, end: 20200130
  11. CIPROFLOXACIN [Concomitant]
     Active Substance: CIPROFLOXACIN
     Dosage: 500 MILLIGRAM
     Route: 048
     Dates: start: 20200122, end: 20200126
  12. FLUCONAZOLE [Concomitant]
     Active Substance: FLUCONAZOLE
     Dosage: 100 MILLIGRAM
     Route: 048
     Dates: start: 20200122, end: 20200128
  13. OXALIPLATIN [Concomitant]
     Active Substance: OXALIPLATIN
     Dosage: UNK
     Dates: start: 20200107, end: 20200107
  14. FLUOROURACIL [Concomitant]
     Active Substance: FLUOROURACIL
     Dosage: UNK
     Dates: start: 20200107, end: 20200108
  15. LEUCOVORIN [Concomitant]
     Active Substance: LEUCOVORIN
     Dosage: UNK
     Dates: start: 20200107, end: 20200108

REACTIONS (1)
  - Large intestinal obstruction [Recovered/Resolved]

NARRATIVE: CASE EVENT DATE: 20200131
